FAERS Safety Report 17038070 (Version 1)
Quarter: 2019Q4

REPORT INFORMATION
  Report Type: Report from Study
  Country: ZA (occurrence: ZA)
  Receive Date: 20191115
  Receipt Date: 20191115
  Transmission Date: 20200122
  Serious: Yes (Death)
  Sender: FDA-Public Use
  Company Number: ZA-ASTRAZENECA-2019SF62851

PATIENT
  Age: 402 Day
  Sex: Male

DRUGS (2)
  1. SYNAGIS [Suspect]
     Active Substance: PALIVIZUMAB
     Indication: LUNG DISORDER
     Dosage: 15.0MG/KG UNKNOWN
     Route: 030
     Dates: start: 20190118, end: 20190515
  2. SYNAGIS [Suspect]
     Active Substance: PALIVIZUMAB
     Indication: HEART DISEASE CONGENITAL
     Dosage: 15.0MG/KG UNKNOWN
     Route: 030
     Dates: start: 20190118, end: 20190515

REACTIONS (1)
  - Death [Fatal]

NARRATIVE: CASE EVENT DATE: 20191028
